FAERS Safety Report 16864813 (Version 2)
Quarter: 2020Q2

REPORT INFORMATION
  Report Type: Report from Study
  Country: CO (occurrence: CO)
  Receive Date: 20190929
  Receipt Date: 20200519
  Transmission Date: 20200713
  Serious: Yes (Life-Threatening, Hospitalization, Other)
  Sender: FDA-Public Use
  Company Number: PHHY2019CO080559

PATIENT
  Sex: Male
  Weight: 60 kg

DRUGS (2)
  1. TASIGNA [Suspect]
     Active Substance: NILOTINIB
     Indication: CHRONIC MYELOID LEUKAEMIA
     Dosage: 300 MG, Q12H(2 OF 150MG)
     Route: 048
     Dates: start: 2012
  2. TASIGNA [Suspect]
     Active Substance: NILOTINIB
     Dosage: 600MG,OD
     Route: 048
     Dates: start: 2012

REACTIONS (5)
  - Pulmonary oedema [Unknown]
  - Dyspnoea [Unknown]
  - Inappropriate schedule of product administration [Unknown]
  - Chronic myeloid leukaemia recurrent [Unknown]
  - Renal disorder [Unknown]
